FAERS Safety Report 20018226 (Version 2)
Quarter: 2022Q1

REPORT INFORMATION
  Report Type: Spontaneous
  Country: US (occurrence: US)
  Receive Date: 20211101
  Receipt Date: 20220204
  Transmission Date: 20220423
  Serious: Yes (Hospitalization)
  Sender: FDA-Public Use
  Company Number: US-CIPLA (EU) LIMITED-2021US07149

PATIENT

DRUGS (1)
  1. ALBUTEROL [Suspect]
     Active Substance: ALBUTEROL
     Indication: Product used for unknown indication
     Dosage: UNK

REACTIONS (11)
  - Condition aggravated [Unknown]
  - Muscle spasms [Unknown]
  - Axillary pain [Unknown]
  - Dyspnoea [Unknown]
  - Bronchitis [Unknown]
  - Asthma [Unknown]
  - Electrocardiogram abnormal [Unknown]
  - Blood pressure increased [Unknown]
  - Chest pain [Unknown]
  - Product communication issue [Unknown]
  - Product design issue [Unknown]
